FAERS Safety Report 23445251 (Version 2)
Quarter: 2024Q1

REPORT INFORMATION
  Report Type: Report from Study
  Country: US (occurrence: US)
  Receive Date: 20240126
  Receipt Date: 20240208
  Transmission Date: 20240409
  Serious: Yes (Hospitalization)
  Sender: FDA-Public Use
  Company Number: US-JNJFOC-20240147564

PATIENT
  Age: 55 Year
  Sex: Female
  Weight: 97.7 kg

DRUGS (3)
  1. EPOPROSTENOL SODIUM [Suspect]
     Active Substance: EPOPROSTENOL SODIUM
     Indication: Pulmonary hypertension
     Route: 042
  2. OPSUMIT [Concomitant]
     Active Substance: MACITENTAN
  3. DILTIAZEM [Concomitant]
     Active Substance: DILTIAZEM

REACTIONS (5)
  - Device occlusion [Unknown]
  - Complication associated with device [Unknown]
  - Device breakage [Unknown]
  - Underdose [Unknown]
  - Tenderness [Unknown]

NARRATIVE: CASE EVENT DATE: 20240116
